FAERS Safety Report 15528035 (Version 1)
Quarter: 2018Q4

REPORT INFORMATION
  Report Type: Spontaneous
  Country: DE (occurrence: DE)
  Receive Date: 20181018
  Receipt Date: 20181018
  Transmission Date: 20190205
  Serious: Yes (Death, Other)
  Sender: FDA-Public Use
  Company Number: DE-SA-2018SA079409

PATIENT

DRUGS (12)
  1. PHENACETIN [Interacting]
     Active Substance: PHENACETIN
     Dosage: UNK (UNKNOWN DOSE)
  2. LIDOCAINE. [Suspect]
     Active Substance: LIDOCAINE
     Dosage: UNK (UNKNOWN DOSE)
  3. NOSCAPINE [Suspect]
     Active Substance: NOSCAPINE
     Dosage: UNK (UNKNOWN DOSE)
  4. COCAINE [Interacting]
     Active Substance: COCAINE
     Dosage: UNK UNK, UNK (UNKNOWN DOSE)
     Route: 065
  5. LEVAMISOLE HYDROCHLORIDE [Interacting]
     Active Substance: LEVAMISOLE HYDROCHLORIDE
     Dosage: UNKNOWN DOSE
     Route: 065
  6. HYDROXYZINE [Interacting]
     Active Substance: HYDROXYZINE HYDROCHLORIDE
     Dosage: UNKNOWN DOSE
  7. PROCAINE [Interacting]
     Active Substance: PROCAINE
     Dosage: UNK (UNKNOWN DOSE)
  8. MIDAZOLAM [Suspect]
     Active Substance: MIDAZOLAM HYDROCHLORIDE
     Dosage: UNK (UNKNOWN DOSE)
  9. CETIRIZINE HYDROCHLORIDE. [Suspect]
     Active Substance: CETIRIZINE HYDROCHLORIDE
     Dosage: UNK (UNKNOWN DOSE)
  10. DILTIAZEM HYDROCHLORIDE. [Interacting]
     Active Substance: DILTIAZEM HYDROCHLORIDE
     Dosage: UNK (UNKNOWN DOSE)
  11. MORPHINE HYDROCHLORIDE [Suspect]
     Active Substance: MORPHINE HYDROCHLORIDE
     Dosage: UNK (UNKNOWN DOSE)
  12. CODEINE [Suspect]
     Active Substance: CODEINE
     Dosage: UNK (UNKNOWN DOSE)

REACTIONS (4)
  - Toxicity to various agents [Fatal]
  - Drug interaction [Fatal]
  - Poisoning [Fatal]
  - Intentional product misuse [Fatal]
